FAERS Safety Report 23917887 (Version 1)
Quarter: 2024Q2

REPORT INFORMATION
  Report Type: Spontaneous
  Country: PT (occurrence: PT)
  Receive Date: 20240530
  Receipt Date: 20240530
  Transmission Date: 20240716
  Serious: Yes (Death, Other)
  Sender: FDA-Public Use
  Company Number: PT-ABBVIE-5641376

PATIENT

DRUGS (46)
  1. ADALIMUMAB [Suspect]
     Active Substance: ADALIMUMAB\ISOPROPYL ALCOHOL
     Indication: Product used for unknown indication
     Dosage: 35 G
     Route: 059
  2. ASPIRIN [Suspect]
     Active Substance: ASPIRIN
     Indication: Product used for unknown indication
     Dosage: 100 MG
     Route: 065
  3. ASPIRIN [Suspect]
     Active Substance: ASPIRIN
     Dosage: 5 MG
     Route: 065
  4. ALISKIREN [Suspect]
     Active Substance: ALISKIREN
     Indication: Product used for unknown indication
     Dosage: UNK
     Route: 065
  5. BUPRENORPHINE [Suspect]
     Active Substance: BUPRENORPHINE
     Indication: Product used for unknown indication
     Dosage: 35 G, Q1H
     Route: 062
  6. CHOLECALCIFEROL [Suspect]
     Active Substance: CHOLECALCIFEROL
     Indication: Product used for unknown indication
     Dosage: DAILY DOSE: 50 G
     Route: 065
  7. CODEINE SULFATE [Suspect]
     Active Substance: CODEINE SULFATE
     Indication: Product used for unknown indication
     Dosage: UNK
     Route: 065
  8. CODEINE PHOSPHATE [Suspect]
     Active Substance: CODEINE PHOSPHATE
     Indication: Product used for unknown indication
     Dosage: UNK
     Route: 065
  9. DILTIAZEM HYDROCHLORIDE [Suspect]
     Active Substance: DILTIAZEM HYDROCHLORIDE
     Indication: Product used for unknown indication
     Dosage: UNK
     Route: 065
  10. DOCETAXEL [Suspect]
     Active Substance: DOCETAXEL\DOCETAXEL ANHYDROUS
     Indication: Product used for unknown indication
     Dosage: 100 MG
     Route: 065
  11. DOMPERIDONE MALEATE [Suspect]
     Active Substance: DOMPERIDONE MALEATE
     Indication: Product used for unknown indication
     Dosage: UNK
     Route: 065
  12. DONEPEZIL HYDROCHLORIDE [Suspect]
     Active Substance: DONEPEZIL HYDROCHLORIDE
     Indication: Product used for unknown indication
     Dosage: DAILY DOSE: 5 MG
     Route: 048
  13. ESOMEPRAZOLE [Suspect]
     Active Substance: ESOMEPRAZOLE
     Indication: Product used for unknown indication
     Dosage: UNK
     Route: 065
  14. ENOXAPARIN SODIUM [Suspect]
     Active Substance: ENOXAPARIN SODIUM
     Indication: Product used for unknown indication
     Dosage: UNK
     Route: 065
  15. ESCHERICHIA COLI [Suspect]
     Active Substance: ESCHERICHIA COLI
     Indication: Product used for unknown indication
     Dosage: UNK
     Route: 065
  16. ESCHERICHIA COLI [Suspect]
     Active Substance: ESCHERICHIA COLI
     Indication: Product used for unknown indication
     Dosage: UNK
     Route: 065
  17. ESCITALOPRAM OXALATE [Suspect]
     Active Substance: ESCITALOPRAM OXALATE
     Indication: Product used for unknown indication
     Dosage: 5 MG
     Route: 065
  18. EXEMESTANE [Suspect]
     Active Substance: EXEMESTANE
     Indication: Product used for unknown indication
     Dosage: UNK
     Route: 065
  19. FENOFIBRATE [Suspect]
     Active Substance: FENOFIBRATE
     Indication: Product used for unknown indication
     Dosage: UNK
     Route: 065
  20. FLUOXETINE HYDROCHLORIDE [Suspect]
     Active Substance: FLUOXETINE HYDROCHLORIDE
     Indication: Product used for unknown indication
     Dosage: UNK
     Route: 065
  21. FLUVASTATIN SODIUM [Suspect]
     Active Substance: FLUVASTATIN SODIUM
     Indication: Product used for unknown indication
     Dosage: UNK
     Route: 065
  22. FLUVASTATIN SODIUM [Suspect]
     Active Substance: FLUVASTATIN SODIUM
     Dosage: UNK
     Route: 065
  23. HYDROCHLOROTHIAZIDE [Suspect]
     Active Substance: HYDROCHLOROTHIAZIDE
     Indication: Product used for unknown indication
     Dosage: UNK
     Route: 065
  24. INDOMETHACIN [Suspect]
     Active Substance: INDOMETHACIN
     Indication: Product used for unknown indication
     Dosage: UNK
     Route: 065
  25. IODINE [Suspect]
     Active Substance: IODINE
     Indication: Product used for unknown indication
     Dosage: UNK
     Route: 065
  26. LEDIPASVIR [Suspect]
     Active Substance: LEDIPASVIR
     Indication: Product used for unknown indication
     Dosage: UNK
     Route: 065
  27. NAUZELIN [Suspect]
     Active Substance: DOMPERIDONE
     Indication: Product used for unknown indication
     Dosage: UNK
     Route: 065
  28. NITROGLYCERIN [Suspect]
     Active Substance: NITROGLYCERIN
     Indication: Product used for unknown indication
     Dosage: UNK
     Route: 065
  29. NORFLOXACIN [Suspect]
     Active Substance: NORFLOXACIN
     Indication: Product used for unknown indication
     Dosage: UNK
     Route: 065
  30. ACETAMINOPHEN [Suspect]
     Active Substance: ACETAMINOPHEN
     Indication: Product used for unknown indication
     Dosage: UNK
     Route: 065
  31. PENTAZOCINE [Suspect]
     Active Substance: PENTAZOCINE
     Indication: Product used for unknown indication
     Dosage: UNK
     Route: 065
  32. PENTAZOCINE HYDROCHLORIDE [Suspect]
     Active Substance: PENTAZOCINE HYDROCHLORIDE
     Indication: Product used for unknown indication
     Dosage: UNK
     Route: 065
  33. PITAVASTATIN [Suspect]
     Active Substance: PITAVASTATIN
     Indication: Product used for unknown indication
     Dosage: UNK
     Route: 065
  34. POTASSIUM IODIDE [Suspect]
     Active Substance: POTASSIUM IODIDE
     Indication: Product used for unknown indication
     Dosage: UNK
     Route: 065
  35. PRAVASTATIN SODIUM [Suspect]
     Active Substance: PRAVASTATIN SODIUM
     Indication: Product used for unknown indication
     Dosage: UNK
     Route: 065
  36. RIBAVIRIN [Suspect]
     Active Substance: RIBAVIRIN
     Indication: Product used for unknown indication
     Dosage: UNK
     Route: 065
  37. SERTRALINE HYDROCHLORIDE [Suspect]
     Active Substance: SERTRALINE HYDROCHLORIDE
     Indication: Product used for unknown indication
     Dosage: UNK
     Route: 065
  38. SIMVASTATIN [Suspect]
     Active Substance: SIMVASTATIN
     Indication: Product used for unknown indication
     Dosage: UNK
     Route: 048
  39. SODIUM PICOSULFATE [Suspect]
     Active Substance: SODIUM PICOSULFATE
     Indication: Product used for unknown indication
     Dosage: 35 G
     Route: 062
  40. TAMSULOSIN HYDROCHLORIDE [Suspect]
     Active Substance: TAMSULOSIN HYDROCHLORIDE
     Indication: Product used for unknown indication
     Dosage: UNK
     Route: 065
  41. TELMISARTAN [Suspect]
     Active Substance: TELMISARTAN
     Indication: Product used for unknown indication
     Dosage: UNK
     Route: 065
  42. TRAMADOL HYDROCHLORIDE [Suspect]
     Active Substance: TRAMADOL HYDROCHLORIDE
     Indication: Product used for unknown indication
     Dosage: UNK
     Route: 065
  43. VERAPAMIL HYDROCHLORIDE [Suspect]
     Active Substance: VERAPAMIL HYDROCHLORIDE
     Indication: Product used for unknown indication
     Dosage: UNK
     Route: 065
  44. VORTIOXETINE [Suspect]
     Active Substance: VORTIOXETINE
     Indication: Product used for unknown indication
     Dosage: UNK
     Route: 065
  45. XYZAL [Suspect]
     Active Substance: LEVOCETIRIZINE DIHYDROCHLORIDE
     Indication: Product used for unknown indication
     Dosage: 5 MG
     Route: 065
  46. ZOLEDRONIC ACID [Suspect]
     Active Substance: ZOLEDRONIC ACID
     Indication: Product used for unknown indication
     Dosage: UNK
     Route: 065

REACTIONS (44)
  - Haematemesis [Fatal]
  - Blindness [Fatal]
  - Fall [Fatal]
  - Urinary tract disorder [Fatal]
  - Haemorrhagic stroke [Fatal]
  - Vomiting [Fatal]
  - Eye pain [Fatal]
  - Photophobia [Fatal]
  - Cardio-respiratory arrest [Fatal]
  - Cough [Fatal]
  - Decreased appetite [Fatal]
  - Nausea [Fatal]
  - Tachycardia [Fatal]
  - Pyrexia [Fatal]
  - Somnolence [Fatal]
  - Amaurosis fugax [Fatal]
  - Chills [Fatal]
  - Asthenia [Fatal]
  - Tinnitus [Fatal]
  - Coma [Fatal]
  - Dyspnoea [Fatal]
  - Myalgia [Fatal]
  - Arthralgia [Fatal]
  - Haematuria [Fatal]
  - Presyncope [Fatal]
  - Syncope [Fatal]
  - Diarrhoea [Fatal]
  - Ascites [Fatal]
  - Dizziness [Fatal]
  - Abdominal pain upper [Fatal]
  - Sepsis [Fatal]
  - Fatigue [Fatal]
  - Ocular discomfort [Fatal]
  - Insomnia [Fatal]
  - Generalised oedema [Fatal]
  - Vision blurred [Fatal]
  - Pruritus [Fatal]
  - Altered state of consciousness [Fatal]
  - Headache [Fatal]
  - Diplopia [Fatal]
  - Blood pressure increased [Fatal]
  - Abdominal pain [Fatal]
  - Head discomfort [Fatal]
  - Diplopia [Unknown]
